FAERS Safety Report 11523981 (Version 1)
Quarter: 2015Q3

REPORT INFORMATION
  Report Type: Spontaneous
  Country: NL (occurrence: NL)
  Receive Date: 20150918
  Receipt Date: 20150918
  Transmission Date: 20151125
  Serious: Yes (Hospitalization)
  Sender: FDA-Public Use
  Company Number: NL-TEVA-592946ISR

PATIENT
  Age: 72 Year
  Sex: Female

DRUGS (11)
  1. AMLODIPINE [Concomitant]
     Active Substance: AMLODIPINE BESYLATE
  2. ENALAPRILMALEAAT [Concomitant]
  3. ACETYLSALICYLZUUR [Concomitant]
  4. CRESTOR [Concomitant]
     Active Substance: ROSUVASTATIN CALCIUM
  5. METFORMINE [Concomitant]
     Active Substance: METFORMIN HYDROCHLORIDE
  6. METOPROLOLTARTRAAT [Concomitant]
  7. LOSARTAN. [Concomitant]
     Active Substance: LOSARTAN
  8. NOVOMIX [Concomitant]
     Active Substance: INSULIN ASPART
     Dosage: 2 DOSAGE FORMS DAILY; IN THE MORNING AND AT NIGHT
  9. DIVISUN [Concomitant]
  10. ESCITALOPRAM 10 MG TEVA, FILMOMHULDE TABLETTEN [Suspect]
     Active Substance: ESCITALOPRAM OXALATE
     Dosage: 10 MILLIGRAM DAILY;
     Route: 048
     Dates: start: 20150813, end: 20150901
  11. OMPERAZOL [Concomitant]

REACTIONS (9)
  - Malaise [Recovering/Resolving]
  - Confusional state [Recovering/Resolving]
  - Apathy [Recovering/Resolving]
  - Dizziness [Recovering/Resolving]
  - Dysphagia [Recovering/Resolving]
  - Daydreaming [Recovering/Resolving]
  - Tremor [Recovering/Resolving]
  - Somnolence [Recovering/Resolving]
  - Dysstasia [Recovering/Resolving]

NARRATIVE: CASE EVENT DATE: 20150828
